FAERS Safety Report 4987484-5 (Version None)
Quarter: 2006Q2

REPORT INFORMATION
  Report Type: 
  Country: None (occurrence: None)
  Receive Date: 20060424
  Receipt Date: 20060404
  Transmission Date: 20061013
  Serious: Yes (Hospitalization)
  Sender: FDA-Public Use
  Company Number: US200604000754

PATIENT
  Age: 78 Year
  Sex: Male

DRUGS (2)
  1. HUMALOG PEN [Suspect]
     Indication: DIABETES MELLITUS NON-INSULIN-DEPENDENT
     Dosage: 4/D
     Dates: start: 20030101
  2. LANTUS [Concomitant]

REACTIONS (10)
  - BLOOD GLUCOSE INCREASED [None]
  - HYPERTENSION [None]
  - JAUNDICE [None]
  - LIVER DISORDER [None]
  - MACULAR DEGENERATION [None]
  - MEDICAL DEVICE COMPLICATION [None]
  - OCULAR ICTERUS [None]
  - PHARMACEUTICAL PRODUCT COMPLAINT [None]
  - URINARY BLADDER POLYP [None]
  - WRONG TECHNIQUE IN DRUG USAGE PROCESS [None]
